FAERS Safety Report 4765825-1 (Version None)
Quarter: 2005Q3

REPORT INFORMATION
  Report Type: 
  Country: None (occurrence: None)
  Receive Date: 20050906
  Receipt Date: 20050822
  Transmission Date: 20060218
  Serious: Yes (Hospitalization, Other)
  Sender: FDA-Public Use
  Company Number: 2005119101

PATIENT
  Age: 85 Year
  Sex: Female
  Weight: 72 kg

DRUGS (4)
  1. ZOLOFT [Suspect]
     Indication: ILL-DEFINED DISORDER
     Dosage: 20 MG (1 D), ORAL
     Route: 048
     Dates: end: 20050622
  2. ARICEPT [Suspect]
     Indication: ILL-DEFINED DISORDER
     Dosage: 10 MG (1D), ORAL
     Route: 048
  3. MEPROBAMATE [Suspect]
     Indication: ILL-DEFINED DISORDER
     Dosage: 200 MG (1 D), ORAL
     Route: 048
     Dates: end: 20050622
  4. RISPERIDONE [Suspect]
     Indication: ILL-DEFINED DISORDER
     Dosage: 1 MG (1 D), ORAL
     Route: 048
     Dates: end: 20050622

REACTIONS (4)
  - ATRIOVENTRICULAR BLOCK FIRST DEGREE [None]
  - FACIAL PALSY [None]
  - HEMIPLEGIA [None]
  - ISCHAEMIC STROKE [None]
